FAERS Safety Report 14608098 (Version 4)
Quarter: 2020Q3

REPORT INFORMATION
  Report Type: Spontaneous
  Country: US (occurrence: US)
  Receive Date: 20180307
  Receipt Date: 20200807
  Transmission Date: 20201102
  Serious: Yes (Other)
  Sender: FDA-Public Use
  Company Number: US-PFIZER INC-2018089282

PATIENT
  Age: 63 Year
  Sex: Female
  Weight: 92.53 kg

DRUGS (2)
  1. ALPRAZOLAM. [Suspect]
     Active Substance: ALPRAZOLAM
     Indication: ANXIETY
     Dosage: 0.5 MG, 3X/DAY
     Route: 048
     Dates: start: 2018, end: 202003
  2. CYMBALTA [Concomitant]
     Active Substance: DULOXETINE HYDROCHLORIDE
     Indication: DEPRESSION
     Dosage: 60 MG, 2X/DAY

REACTIONS (11)
  - Diabetes mellitus [Unknown]
  - Drug hypersensitivity [Unknown]
  - Insomnia [Unknown]
  - Malaise [Unknown]
  - Drug ineffective [Unknown]
  - Skin disorder [Unknown]
  - Nervousness [Unknown]
  - Somnolence [Recovering/Resolving]
  - Pruritus [Unknown]
  - Sedation [Unknown]
  - Urticaria [Unknown]

NARRATIVE: CASE EVENT DATE: 2018
